FAERS Safety Report 23438211 (Version 1)
Quarter: 2024Q1

REPORT INFORMATION
  Report Type: Spontaneous
  Country: US (occurrence: US)
  Receive Date: 20240124
  Receipt Date: 20240124
  Transmission Date: 20240410
  Serious: No
  Sender: FDA-Public Use
  Company Number: US-PERRIGO-23US002748

PATIENT
  Age: 91 Year
  Sex: Female
  Weight: 56.689 kg

DRUGS (5)
  1. IBUPROFEN AND DIPHENHYDRAMINE CITRATE [Suspect]
     Active Substance: DIPHENHYDRAMINE CITRATE\IBUPROFEN
     Indication: Insomnia
     Dosage: ONE TABLET, EVERY NIGHT
     Route: 048
     Dates: start: 20230217, end: 20230218
  2. IBUPROFEN [Concomitant]
     Active Substance: IBUPROFEN
     Indication: Bursitis
     Dosage: TWO TABLETS, EVERY MORNING
     Route: 048
     Dates: start: 20230217
  3. AMLODIPINE [Concomitant]
     Active Substance: AMLODIPINE BESYLATE
     Indication: Hypertension
     Dosage: UNK
     Route: 065
     Dates: start: 2015
  4. HYDROCHLOROTHIAZIDE [Concomitant]
     Active Substance: HYDROCHLOROTHIAZIDE
     Indication: Hypertension
     Dosage: UNK
     Route: 065
     Dates: start: 2015
  5. LOSARTAN [Concomitant]
     Active Substance: LOSARTAN
     Indication: Hypertension
     Dosage: UNK
     Route: 065
     Dates: start: 2015

REACTIONS (3)
  - Insomnia [Recovered/Resolved]
  - Reaction to excipient [Recovered/Resolved]
  - Underdose [Recovered/Resolved]

NARRATIVE: CASE EVENT DATE: 20230217
